FAERS Safety Report 4923636-8 (Version None)
Quarter: 2006Q1

REPORT INFORMATION
  Report Type: 
  Country: None (occurrence: None)
  Receive Date: 20060227
  Receipt Date: 20030605
  Transmission Date: 20060701
  Serious: Yes (Hospitalization, Disabling)
  Sender: FDA-Public Use
  Company Number: US-MERCK-0306USA00840

PATIENT
  Age: 59 Year
  Sex: Female
  Weight: 95 kg

DRUGS (8)
  1. VIOXX [Suspect]
     Indication: OSTEOARTHRITIS
     Route: 048
     Dates: start: 19991004, end: 20010501
  2. PREMARIN [Concomitant]
     Route: 065
     Dates: start: 19810101
  3. NEURONTIN [Concomitant]
     Route: 065
  4. VICODIN [Concomitant]
     Indication: ARTHRALGIA
     Route: 065
  5. VICODIN [Concomitant]
     Route: 065
  6. HYDRODIURIL [Concomitant]
     Route: 048
  7. ASPIRIN [Concomitant]
     Route: 065
  8. BIAXIN XL [Concomitant]
     Route: 065

REACTIONS (27)
  - ABDOMINAL PAIN [None]
  - ABDOMINAL PAIN UPPER [None]
  - ADVERSE EVENT [None]
  - ANAEMIA [None]
  - BACK DISORDER [None]
  - BREAST DISORDER [None]
  - BURNING SENSATION [None]
  - CHEST PAIN [None]
  - CONSTIPATION [None]
  - DERMATITIS CONTACT [None]
  - DIARRHOEA [None]
  - DYSPNOEA [None]
  - ELECTROCARDIOGRAM ST-T SEGMENT ABNORMAL [None]
  - GASTRITIS [None]
  - GASTROOESOPHAGEAL REFLUX DISEASE [None]
  - HYPERHIDROSIS [None]
  - HYPERTENSION [None]
  - INTESTINAL POLYP [None]
  - LUMBAR SPINAL STENOSIS [None]
  - MUSCLE TIGHTNESS [None]
  - MUSCULAR WEAKNESS [None]
  - MYALGIA [None]
  - NOCTURIA [None]
  - OEDEMA [None]
  - OSTEOARTHRITIS [None]
  - PARAESTHESIA [None]
  - RECTAL HAEMORRHAGE [None]
